FAERS Safety Report 4555780-1 (Version None)
Quarter: 2005Q1

REPORT INFORMATION
  Report Type: 
  Country: None (occurrence: None)
  Receive Date: 20050118
  Receipt Date: 20041012
  Transmission Date: 20050727
  Serious: No
  Sender: FDA-Public Use
  Company Number: A03200403456

PATIENT

DRUGS (4)
  1. UROXATRAL [Suspect]
     Dosage: ORAL
     Route: 048
  2. ATENOLOL [Concomitant]
  3. PHOSPHODIESTERASE TYPE 5 [Concomitant]
  4. ANTI-HYPERSENSITIVE MEDICATIONS [Concomitant]

REACTIONS (2)
  - DYSPNOEA [None]
  - OEDEMA PERIPHERAL [None]
